FAERS Safety Report 26009949 (Version 2)
Quarter: 2025Q4

REPORT INFORMATION
  Report Type: Report from Study
  Country: CA (occurrence: CA)
  Receive Date: 20251107
  Receipt Date: 20251119
  Transmission Date: 20260118
  Serious: Yes (Other)
  Sender: TAKEDA
  Company Number: CA-TAKEDA-2025TUS097551

PATIENT
  Age: 34 Year
  Sex: Male

DRUGS (2)
  1. VEDOLIZUMAB [Suspect]
     Active Substance: VEDOLIZUMAB
     Indication: Crohn^s disease
     Dosage: 300 MILLIGRAM
  2. IMURAN [Concomitant]
     Active Substance: AZATHIOPRINE
     Dosage: 150 MILLIGRAM

REACTIONS (4)
  - Crohn^s disease [Unknown]
  - Therapeutic reaction time decreased [Unknown]
  - Product dose omission issue [Unknown]
  - Arthralgia [Unknown]
